FAERS Safety Report 6395877-7 (Version None)
Quarter: 2009Q4

REPORT INFORMATION
  Report Type: 
  Country: None (occurrence: None)
  Receive Date: 20091009
  Receipt Date: 20090729
  Transmission Date: 20100525
  Serious: No
  Sender: FDA-Public Use
  Company Number: A0800744A

PATIENT
  Age: 61 Year
  Sex: Female

DRUGS (2)
  1. TYKERB [Suspect]
     Indication: DRUG USE FOR UNKNOWN INDICATION
     Route: 048
     Dates: start: 20090717
  2. XELODA [Suspect]
     Indication: DRUG USE FOR UNKNOWN INDICATION
     Route: 048
     Dates: start: 20090717

REACTIONS (8)
  - CONSTIPATION [None]
  - DERMATITIS ACNEIFORM [None]
  - NAUSEA [None]
  - PAIN [None]
  - RASH [None]
  - RASH PRURITIC [None]
  - SKIN BURNING SENSATION [None]
  - VOMITING [None]
